FAERS Safety Report 21675745 (Version 1)
Quarter: 2022Q4

REPORT INFORMATION
  Report Type: Spontaneous
  Country: US (occurrence: US)
  Receive Date: 20221202
  Receipt Date: 20221202
  Transmission Date: 20230113
  Serious: No
  Sender: FDA-Public Use
  Company Number: US-ELI_LILLY_AND_COMPANY-US202211001876

PATIENT
  Age: 55 Year
  Sex: Female

DRUGS (4)
  1. BEBTELOVIMAB [Suspect]
     Active Substance: BEBTELOVIMAB
     Indication: COVID-19
     Dosage: 175 MG, SINGLE
     Route: 042
     Dates: start: 20221028, end: 20221028
  2. VITAMIN C [Concomitant]
     Active Substance: ASCORBIC ACID
     Dosage: UNK UNK, UNKNOWN
     Route: 065
  3. ZINC [Concomitant]
     Active Substance: ZINC
     Dosage: UNK UNK, UNKNOWN
     Route: 065
  4. CHOLECALCIFEROL [Concomitant]
     Active Substance: CHOLECALCIFEROL
     Dosage: UNK UNK, UNKNOWN
     Route: 065

REACTIONS (12)
  - Yawning [Recovered/Resolved]
  - Tremor [Recovered/Resolved]
  - Speech disorder [Recovered/Resolved]
  - Pyrexia [Recovered/Resolved]
  - Somnolence [Unknown]
  - Cough [Not Recovered/Not Resolved]
  - Sneezing [Recovered/Resolved]
  - Rhinorrhoea [Recovering/Resolving]
  - Musculoskeletal chest pain [Recovered/Resolved]
  - Paraesthesia [Not Recovered/Not Resolved]
  - Flushing [Unknown]
  - Hyperhidrosis [Not Recovered/Not Resolved]

NARRATIVE: CASE EVENT DATE: 20221028
